FAERS Safety Report 9678935 (Version 1)
Quarter: 2013Q4

REPORT INFORMATION
  Report Type: Spontaneous
  Country: US (occurrence: US)
  Receive Date: 20131108
  Receipt Date: 20131108
  Transmission Date: 20140711
  Serious: Yes (Other)
  Sender: FDA-Public Use
  Company Number: US-PFIZER INC-2013316054

PATIENT
  Age: 7 Decade
  Sex: 0

DRUGS (5)
  1. ZOLOFT [Suspect]
     Dosage: UNK
  2. ATIVAN [Interacting]
     Dosage: UNK
  3. RISPERDAL [Interacting]
     Dosage: UNK
  4. PAXIL [Interacting]
     Dosage: UNK
  5. NUEDEXTA [Interacting]
     Dosage: UNK

REACTIONS (5)
  - Anticholinergic syndrome [Recovered/Resolved]
  - Urine flow decreased [Recovered/Resolved]
  - Somnolence [Recovered/Resolved]
  - Lethargy [Recovered/Resolved]
  - Drug interaction [Recovered/Resolved]
